FAERS Safety Report 7833966-8 (Version None)
Quarter: 2011Q4

REPORT INFORMATION
  Report Type: 
  Country: None (occurrence: None)
  Receive Date: 20111024
  Receipt Date: 20111013
  Transmission Date: 20120403
  Serious: Yes (Hospitalization)
  Sender: FDA-Public Use
  Company Number: US-JNJFOC-20091205710

PATIENT
  Sex: Male
  Weight: 59.4 kg

DRUGS (3)
  1. MERCAPTOPURINE [Concomitant]
  2. INFLIXIMAB [Suspect]
     Indication: INFLAMMATORY BOWEL DISEASE
     Route: 042
  3. GLYCOLAX [Concomitant]

REACTIONS (1)
  - PERIRECTAL ABSCESS [None]
